FAERS Safety Report 21871564 (Version 1)
Quarter: 2023Q1

REPORT INFORMATION
  Report Type: Spontaneous
  Country: US (occurrence: US)
  Receive Date: 20230117
  Receipt Date: 20230117
  Transmission Date: 20230418
  Serious: Yes (Hospitalization)
  Sender: FDA-Public Use
  Company Number: US-VIVUS, Inc.-2023V1000017

PATIENT
  Age: 39 Year
  Sex: Female
  Weight: 89.438 kg

DRUGS (1)
  1. QSYMIA [Suspect]
     Active Substance: PHENTERMINE HYDROCHLORIDE\TOPIRAMATE
     Indication: Weight decreased
     Route: 048
     Dates: start: 202203

REACTIONS (4)
  - Visual impairment [Recovered/Resolved]
  - Memory impairment [Unknown]
  - Feeling jittery [Unknown]
  - Nervousness [Unknown]
